FAERS Safety Report 12309093 (Version 1)
Quarter: 2016Q2

REPORT INFORMATION
  Report Type: Spontaneous
  Country: None (occurrence: None)
  Receive Date: 20160426
  Receipt Date: 20160426
  Transmission Date: 20160815
  Serious: Yes (Other)
  Sender: FDA-Public Use
  Company Number: None

PATIENT
  Age: 5 Year
  Sex: Male

DRUGS (2)
  1. MONTELUKAST SOD CHEW TABS 4 MG, 4 MG [Suspect]
     Active Substance: MONTELUKAST SODIUM
     Indication: ASTHMA
     Route: 048
  2. MONTELUKAST SOD CHEW TABS 4 MG, 4 MG [Suspect]
     Active Substance: MONTELUKAST SODIUM
     Indication: MULTIPLE ALLERGIES
     Route: 048

REACTIONS (10)
  - Nightmare [None]
  - Hyperphagia [None]
  - Abnormal behaviour [None]
  - Disturbance in attention [None]
  - Weight increased [None]
  - Middle insomnia [None]
  - Suicidal ideation [None]
  - Aggression [None]
  - Social avoidant behaviour [None]
  - Self injurious behaviour [None]

NARRATIVE: CASE EVENT DATE: 20150827
